FAERS Safety Report 5912788-9 (Version None)
Quarter: 2008Q4

REPORT INFORMATION
  Report Type: 
  Country: None (occurrence: None)
  Receive Date: 20081006
  Receipt Date: 20081001
  Transmission Date: 20090506
  Serious: Yes (Death)
  Sender: FDA-Public Use
  Company Number: 2008SP016451

PATIENT
  Age: 49 Year
  Sex: Male

DRUGS (2)
  1. TEMODAL [Suspect]
     Indication: BRAIN NEOPLASM
     Dosage: 100 MG;, 20 MG;
     Dates: end: 20080617
  2. TEMODAL [Suspect]
     Indication: BRAIN NEOPLASM
     Dosage: 100 MG;, 20 MG;
     Dates: start: 20080201

REACTIONS (1)
  - DEATH [None]
